FAERS Safety Report 15324318 (Version 1)
Quarter: 2018Q3

REPORT INFORMATION
  Report Type: Spontaneous
  Country: US (occurrence: US)
  Receive Date: 20180828
  Receipt Date: 20180828
  Transmission Date: 20181010
  Serious: Yes (Other)
  Sender: FDA-Public Use
  Company Number: US-009507513-1808USA011249

PATIENT
  Sex: Male

DRUGS (2)
  1. CUBICIN RF [Suspect]
     Active Substance: DAPTOMYCIN
     Dosage: UNK
  2. CUBICIN [Suspect]
     Active Substance: DAPTOMYCIN
     Dosage: UNK

REACTIONS (37)
  - Respiratory failure [Unknown]
  - Rhabdomyolysis [Unknown]
  - Electrolyte imbalance [Unknown]
  - Blood alkaline phosphatase increased [Unknown]
  - Atrial flutter [Unknown]
  - Movement disorder [Unknown]
  - Hypoxia [Unknown]
  - Confusional state [Unknown]
  - Diarrhoea [Unknown]
  - Abdominal pain [Unknown]
  - Restlessness [Unknown]
  - Respiration abnormal [Unknown]
  - Dyspnoea [Unknown]
  - Headache [Unknown]
  - Asthenia [Unknown]
  - Blood creatinine abnormal [Unknown]
  - Renal impairment [Unknown]
  - Hypotension [Unknown]
  - Hepatic function abnormal [Unknown]
  - Hypersensitivity [Unknown]
  - Hypokalaemia [Unknown]
  - Neuropathy peripheral [Unknown]
  - Blood creatine phosphokinase increased [Unknown]
  - Dizziness [Unknown]
  - Muscle twitching [Unknown]
  - Intestinal dilatation [Unknown]
  - Dyskinesia [Unknown]
  - Blood thromboplastin abnormal [Unknown]
  - Blood bicarbonate increased [Unknown]
  - Fatigue [Unknown]
  - Flushing [Unknown]
  - Muscular weakness [Unknown]
  - Staphylococcal infection [Unknown]
  - Cough [Unknown]
  - Myopathy [Unknown]
  - Dry mouth [Unknown]
  - Myalgia [Unknown]
